FAERS Safety Report 5958736-7 (Version None)
Quarter: 2008Q4

REPORT INFORMATION
  Report Type: 
  Country: None (occurrence: None)
  Receive Date: 20081119
  Receipt Date: 20081114
  Transmission Date: 20090506
  Serious: Yes (Hospitalization)
  Sender: FDA-Public Use
  Company Number: JP-B.I. PHARMACEUTICALS,INC./RIDGEFIELD-2008-BP-13829NB

PATIENT
  Sex: Female
  Weight: 38 kg

DRUGS (3)
  1. PRAMIPEXOLE DIHYDROCHLORIDE [Suspect]
     Indication: PARKINSON'S DISEASE
     Dosage: 3MG
     Route: 048
     Dates: end: 20080725
  2. MADOPAR [Suspect]
     Indication: PARKINSON'S DISEASE
     Dosage: 150MG
     Route: 048
     Dates: start: 20060728
  3. SELEGILINE HCL [Suspect]
     Indication: PARKINSON'S DISEASE
     Dosage: 2.5MG
     Route: 048
     Dates: start: 20080314

REACTIONS (1)
  - POSTURE ABNORMAL [None]
